FAERS Safety Report 22045187 (Version 1)
Quarter: 2023Q1

REPORT INFORMATION
  Report Type: Spontaneous
  Country: US (occurrence: US)
  Receive Date: 20230228
  Receipt Date: 20230228
  Transmission Date: 20230418
  Serious: Yes (Hospitalization, Other)
  Sender: FDA-Public Use
  Company Number: US-JUBILANT CADISTA PHARMACEUTICALS-2023JUB00083

PATIENT
  Sex: Female

DRUGS (8)
  1. PREDNISONE [Suspect]
     Active Substance: PREDNISONE
     Dosage: UNK
     Dates: start: 202207, end: 202208
  2. METOPROLOL [Concomitant]
     Active Substance: METOPROLOL
  3. TRIAMTERENE [Concomitant]
     Active Substance: TRIAMTERENE
  4. OLMESARTAN [Concomitant]
     Active Substance: OLMESARTAN
  5. URSODIOL [Concomitant]
     Active Substance: URSODIOL
  6. CALCIUM [Concomitant]
     Active Substance: CALCIUM
  7. LEVOTHYROXINE [Concomitant]
     Active Substance: LEVOTHYROXINE
  8. AMLODIPINE [Concomitant]
     Active Substance: AMLODIPINE BESYLATE

REACTIONS (3)
  - Blood glucose increased [Recovering/Resolving]
  - Type 2 diabetes mellitus [None]
  - Fatigue [Recovering/Resolving]

NARRATIVE: CASE EVENT DATE: 20220101
